FAERS Safety Report 7509481-8 (Version None)
Quarter: 2011Q2

REPORT INFORMATION
  Report Type: 
  Country: None (occurrence: None)
  Receive Date: 20110527
  Receipt Date: 20110222
  Transmission Date: 20111010
  Serious: No
  Sender: FDA-Public Use
  Company Number: US-MYLANLABS-2011S1002479

PATIENT
  Age: 59 Year
  Sex: Female
  Weight: 54.43 kg

DRUGS (12)
  1. ESTROGENIC SUBSTANCE [Concomitant]
  2. VITAMINS [Concomitant]
  3. NIACIN [Concomitant]
     Dates: start: 20101001
  4. BACLOFEN [Concomitant]
     Indication: NEURALGIA
     Route: 048
     Dates: start: 20100701
  5. LAMOTRIGINE [Suspect]
     Route: 048
     Dates: start: 20110119, end: 20110204
  6. CHONDROITIN [Concomitant]
  7. SIMVASTATIN [Concomitant]
     Dates: start: 20100801
  8. PROGESTERONE W/ESTROGENS [Concomitant]
     Dosage: 200
  9. LEVOXYL [Concomitant]
  10. LAMOTRIGINE [Suspect]
     Indication: TRIGEMINAL NEURALGIA
     Dates: start: 20100701, end: 20101203
  11. LAMOTRIGINE [Suspect]
     Route: 048
     Dates: start: 20101203, end: 20110204
  12. FISH OIL [Concomitant]

REACTIONS (8)
  - POLLAKIURIA [None]
  - URINARY TRACT DISORDER [None]
  - DIZZINESS [None]
  - PAIN [None]
  - DRY MOUTH [None]
  - DYSURIA [None]
  - PYREXIA [None]
  - VISION BLURRED [None]
